FAERS Safety Report 19055296 (Version 3)
Quarter: 2022Q3

REPORT INFORMATION
  Report Type: Spontaneous
  Country: JP (occurrence: JP)
  Receive Date: 20210324
  Receipt Date: 20220714
  Transmission Date: 20221027
  Serious: No
  Sender: FDA-Public Use
  Company Number: JP-GSKNCCC-CASE-01171532_AE-42208

PATIENT

DRUGS (13)
  1. ATOVAQUONE [Suspect]
     Active Substance: ATOVAQUONE
     Indication: Antifungal prophylaxis
     Dosage: 2 DF, QD
     Route: 048
     Dates: start: 201905
  2. PREDNISOLONE [Concomitant]
     Active Substance: PREDNISOLONE
     Dosage: 5 MG, BID
     Route: 048
     Dates: start: 201905
  3. VONOPRAZAN FUMARATE [Concomitant]
     Active Substance: VONOPRAZAN FUMARATE
     Dosage: 10 MG, QD
     Route: 048
  4. ALENDRONATE SODIUM [Concomitant]
     Active Substance: ALENDRONATE SODIUM
     Dosage: 35 MG, WE
     Route: 048
  5. SODIUM FERROUS CITRATE [Concomitant]
     Active Substance: SODIUM FERROUS CITRATE
     Dosage: 50 MG, BID
     Route: 048
  6. AZOSEMIDE TABLET [Concomitant]
     Dosage: 30 MG, QD
     Route: 048
  7. BISOPROLOL [Concomitant]
     Active Substance: BISOPROLOL
     Dosage: 2.5 MG, BID
     Route: 048
  8. ELIQUIS [Concomitant]
     Active Substance: APIXABAN
     Dosage: 5 MG, BID
     Route: 048
  9. BISONO TAPE [Concomitant]
     Dosage: 4 MG, QD
     Route: 061
  10. VERAPAMIL HYDROCHLORIDE [Concomitant]
     Active Substance: VERAPAMIL HYDROCHLORIDE
     Dosage: 40 MG, 6D
     Route: 048
  11. VALSARTAN [Concomitant]
     Active Substance: VALSARTAN
     Dosage: 80 MG, QD
     Route: 048
  12. BENZBROMARONE TABLETS [Concomitant]
     Dosage: 50 MG, QD
     Route: 048
  13. LOXOPROFEN SODIUM DIHYDRATE [Concomitant]
     Active Substance: LOXOPROFEN SODIUM DIHYDRATE
     Dosage: 100 MG, QD
     Route: 061

REACTIONS (2)
  - Somnolence [Recovered/Resolved]
  - Treatment noncompliance [Unknown]

NARRATIVE: CASE EVENT DATE: 20210101
